FAERS Safety Report 5870412-8 (Version None)
Quarter: 2008Q3

REPORT INFORMATION
  Report Type: 
  Country: None (occurrence: None)
  Receive Date: 20080904
  Receipt Date: 20080312
  Transmission Date: 20090109
  Serious: No
  Sender: FDA-Public Use
  Company Number: US-BRISTOL-MYERS SQUIBB COMPANY-14085849

PATIENT
  Age: 37 Year
  Sex: Female

DRUGS (1)
  1. DEFINITY [Suspect]
     Indication: EXERCISE TEST
     Route: 042
     Dates: start: 20080206, end: 20080206

REACTIONS (3)
  - HEART RATE INCREASED [None]
  - HYPERTENSION [None]
  - HYPOAESTHESIA [None]
